FAERS Safety Report 4810994-8 (Version None)
Quarter: 2005Q4

REPORT INFORMATION
  Report Type: 
  Country: None (occurrence: None)
  Receive Date: 20051025
  Receipt Date: 20051019
  Transmission Date: 20060501
  Serious: Yes (Other)
  Sender: FDA-Public Use
  Company Number: 2005AL004310

PATIENT
  Age: 19 Year
  Sex: Female

DRUGS (5)
  1. PHENYTOIN [Suspect]
     Indication: CONVULSION
     Dosage: 700 MG;QD
  2. CYCLOSPORINE [Suspect]
     Dosage: BID
  3. TACROLIMUS [Suspect]
     Dosage: BID
  4. MYCHOPHENOLAE MOFETIL [Concomitant]
  5. METHYLPREDNISOLONE [Concomitant]

REACTIONS (5)
  - BLOOD CREATININE INCREASED [None]
  - DRUG INTERACTION [None]
  - DRUG LEVEL CHANGED [None]
  - KIDNEY TRANSPLANT REJECTION [None]
  - POST PROCEDURAL COMPLICATION [None]
